FAERS Safety Report 6325104-8 (Version None)
Quarter: 2009Q3

REPORT INFORMATION
  Report Type: 
  Country: None (occurrence: None)
  Receive Date: 20090824
  Receipt Date: 20090706
  Transmission Date: 20100115
  Serious: No
  Sender: FDA-Public Use
  Company Number: US-ABBOTT-09P-163-0583831-00

PATIENT
  Sex: Female
  Weight: 50.848 kg

DRUGS (1)
  1. NIASPAN [Suspect]
     Indication: BLOOD CHOLESTEROL INCREASED
     Dosage: 1 IN 1 DAY-TOOK ONE DOSE
     Route: 048
     Dates: start: 20090630, end: 20090630

REACTIONS (4)
  - ALLERGIC OEDEMA [None]
  - ERYTHEMA [None]
  - PAIN [None]
  - PRURITUS [None]
